FAERS Safety Report 18855296 (Version 1)
Quarter: 2021Q1

REPORT INFORMATION
  Report Type: Spontaneous
  Country: CA (occurrence: CA)
  Receive Date: 20210205
  Receipt Date: 20210205
  Transmission Date: 20210420
  Serious: Yes (Death)
  Sender: FDA-Public Use
  Company Number: CA-JACOBUS PHARMACEUTICAL COMPANY, INC.-2106416

PATIENT
  Age: 58 Year
  Sex: Male

DRUGS (10)
  1. CEFTRIAXONE SODIUM. [Concomitant]
     Active Substance: CEFTRIAXONE SODIUM
  2. MULTIPLE VITAMINS [Concomitant]
     Active Substance: VITAMINS
  3. TRADJENTA [Concomitant]
     Active Substance: LINAGLIPTIN
  4. DAPSONE. [Suspect]
     Active Substance: DAPSONE
     Indication: ANTIFUNGAL PROPHYLAXIS
     Route: 048
  5. BISOPROLOL. [Concomitant]
     Active Substance: BISOPROLOL FUMARATE
  6. CIPROFLOXACIN. [Concomitant]
     Active Substance: CIPROFLOXACIN
  7. FUROSEMIDE. [Concomitant]
     Active Substance: FUROSEMIDE
  8. BASAGLAR [Concomitant]
     Active Substance: INSULIN GLARGINE
  9. LACTULOSE. [Concomitant]
     Active Substance: LACTULOSE
  10. TRIUMEQ [Concomitant]
     Active Substance: ABACAVIR SULFATE\DOLUTEGRAVIR SODIUM\LAMIVUDINE

REACTIONS (8)
  - Shock [Fatal]
  - Haemolysis [Fatal]
  - Transfusion [Fatal]
  - Haemolytic anaemia [Fatal]
  - Haemoglobin decreased [Fatal]
  - Respiratory failure [Fatal]
  - Blood bilirubin increased [Fatal]
  - Blood lactate dehydrogenase increased [Fatal]

NARRATIVE: CASE EVENT DATE: 20200228
